FAERS Safety Report 23301977 (Version 2)
Quarter: 2023Q4

REPORT INFORMATION
  Report Type: Spontaneous
  Country: HR (occurrence: HR)
  Receive Date: 20231215
  Receipt Date: 20231222
  Transmission Date: 20240109
  Serious: Yes (Other)
  Sender: FDA-Public Use
  Company Number: HR-002147023-NVSC2023HR262885

PATIENT
  Sex: Male

DRUGS (2)
  1. SECUKINUMAB [Suspect]
     Active Substance: SECUKINUMAB
     Indication: Juvenile spondyloarthritis
     Dosage: 150 MG, QMO
     Route: 058
     Dates: start: 202106
  2. SECUKINUMAB [Suspect]
     Active Substance: SECUKINUMAB
     Indication: HLA-B*27 positive

REACTIONS (2)
  - Iridocyclitis [Recovered/Resolved]
  - Photophobia [Recovered/Resolved]

NARRATIVE: CASE EVENT DATE: 20230601
